FAERS Safety Report 7000559-4 (Version None)
Quarter: 2010Q3

REPORT INFORMATION
  Report Type: 
  Country: None (occurrence: None)
  Receive Date: 20100920
  Receipt Date: 20100519
  Transmission Date: 20110219
  Serious: Yes (Hospitalization)
  Sender: FDA-Public Use
  Company Number: US-ASTRAZENECA-2010SE23052

PATIENT
  Age: 60 Year
  Sex: Female

DRUGS (2)
  1. SEROQUEL XR [Suspect]
     Route: 048
  2. MULTIPLE OTHER MEDICATIONS [Concomitant]

REACTIONS (1)
  - OEDEMA PERIPHERAL [None]
